FAERS Safety Report 16255725 (Version 4)
Quarter: 2019Q2

REPORT INFORMATION
  Report Type: Spontaneous
  Country: JP (occurrence: JP)
  Receive Date: 20190430
  Receipt Date: 20190626
  Transmission Date: 20190711
  Serious: Yes (Disabling, Other)
  Sender: FDA-Public Use
  Company Number: JP-ASTRAZENECA-2019SE63589

PATIENT
  Age: 29035 Day
  Sex: Female
  Weight: 32 kg

DRUGS (7)
  1. BIOLACTIS [Concomitant]
     Active Substance: LACTOBACILLUS CASEI
     Indication: NON-SMALL CELL LUNG CANCER
     Route: 048
     Dates: start: 20170801, end: 20190520
  2. ALFACALCIDOL [Concomitant]
     Active Substance: ALFACALCIDOL
     Indication: OSTEOPOROSIS
     Route: 048
  3. IRESSA [Suspect]
     Active Substance: GEFITINIB
     Indication: NON-SMALL CELL LUNG CANCER
     Route: 048
     Dates: start: 20171208, end: 20190227
  4. ASPARA-CA [Concomitant]
     Active Substance: CALCIUM ASPARTATE
     Indication: OSTEOPOROSIS
     Route: 048
  5. IRESSA [Suspect]
     Active Substance: GEFITINIB
     Indication: NON-SMALL CELL LUNG CANCER
     Route: 048
     Dates: start: 20170724, end: 20171005
  6. IRESSA [Suspect]
     Active Substance: GEFITINIB
     Indication: NON-SMALL CELL LUNG CANCER
     Route: 048
     Dates: start: 20171006, end: 20171207
  7. RABEPRAZOLE [Concomitant]
     Active Substance: RABEPRAZOLE
     Indication: CHRONIC GASTRITIS
     Route: 048

REACTIONS (7)
  - Rash [Recovering/Resolving]
  - Extremity necrosis [Recovered/Resolved with Sequelae]
  - Atheroembolism [Recovered/Resolved with Sequelae]
  - Blister infected [Unknown]
  - Skin ulcer [Unknown]
  - Paronychia [Recovered/Resolved with Sequelae]
  - Off label use [Unknown]

NARRATIVE: CASE EVENT DATE: 20171006
